FAERS Safety Report 11680446 (Version 2)
Quarter: 2015Q4

REPORT INFORMATION
  Report Type: Spontaneous
  Country: US (occurrence: US)
  Receive Date: 20151027
  Receipt Date: 20151104
  Transmission Date: 20160304
  Serious: No
  Sender: FDA-Public Use
  Company Number: US-ELI_LILLY_AND_COMPANY-US201009002988

PATIENT
  Age: 61 Year
  Sex: Female

DRUGS (9)
  1. FORTEO [Suspect]
     Active Substance: TERIPARATIDE
     Dosage: 20 UG, OTHER TAKING FOR 5 DAYS THEN NOT TAKING IT 2 DAYS
     Dates: end: 200905
  2. CALCIUM [Concomitant]
     Active Substance: CALCIUM
  3. FORTEO [Suspect]
     Active Substance: TERIPARATIDE
     Indication: OSTEOPOROSIS
     Dosage: 20 UG, OTHER TAKING FOR 5 DAYS THEN NOT TAKING IT 2 DAYS
  4. FORTEO [Suspect]
     Active Substance: TERIPARATIDE
     Dosage: 20 UG, UNK
     Dates: start: 201009
  5. FORTEO [Suspect]
     Active Substance: TERIPARATIDE
     Dosage: 20 UG, OTHER EVERY 36 HOURS
  6. MAGNESIUM [Concomitant]
     Active Substance: MAGNESIUM
     Dosage: 800 MG, UNK
  7. THYROID THERAPY [Concomitant]
     Active Substance: UNSPECIFIED INGREDIENT
     Indication: THYROID DISORDER
     Dosage: UNK, UNKNOWN
  8. FORTEO [Suspect]
     Active Substance: TERIPARATIDE
     Dosage: 20 UG, UNKNOWN
  9. THYROID THERAPY [Concomitant]
     Active Substance: UNSPECIFIED INGREDIENT
     Dosage: UNK, UNKNOWN

REACTIONS (22)
  - Bone density decreased [Recovering/Resolving]
  - Fatigue [Recovered/Resolved]
  - Hypometabolism [Unknown]
  - Urine viscosity increased [Recovered/Resolved]
  - Urine odour abnormal [Recovered/Resolved]
  - Weight increased [Unknown]
  - Intentional product misuse [Unknown]
  - Myalgia [Unknown]
  - Chromaturia [Recovered/Resolved]
  - Medication error [Not Recovered/Not Resolved]
  - Inappropriate schedule of drug administration [Unknown]
  - Drug dose omission [Unknown]
  - Memory impairment [Unknown]
  - Renal impairment [Unknown]
  - Feeding disorder [Recovered/Resolved]
  - Hypotonia [Recovered/Resolved]
  - Pain [Recovering/Resolving]
  - Muscle spasms [Recovered/Resolved]
  - Bone pain [Unknown]
  - Influenza [Unknown]
  - Back pain [Unknown]
  - Vomiting [Unknown]

NARRATIVE: CASE EVENT DATE: 201009
